FAERS Safety Report 5587262-2 (Version None)
Quarter: 2008Q1

REPORT INFORMATION
  Report Type: 
  Country: None (occurrence: None)
  Receive Date: 20080110
  Receipt Date: 20080103
  Transmission Date: 20080703
  Serious: Yes (Hospitalization)
  Sender: FDA-Public Use
  Company Number: US-ELI_LILLY_AND_COMPANY-US200801000500

PATIENT
  Age: 67 Year
  Sex: Male

DRUGS (6)
  1. HUMALOG [Suspect]
     Dosage: UNK, UNK
  2. LANTUS [Concomitant]
  3. BETA BLOCKING AGENTS [Concomitant]
  4. ASPIRIN [Concomitant]
  5. ADVAIR DISKUS 100/50 [Concomitant]
  6. ANTIBIOTICS [Concomitant]

REACTIONS (3)
  - ARRHYTHMIA [None]
  - BLOOD GLUCOSE INCREASED [None]
  - LUNG DISORDER [None]
